FAERS Safety Report 25515612 (Version 1)
Quarter: 2025Q3

REPORT INFORMATION
  Report Type: Spontaneous
  Country: US (occurrence: US)
  Receive Date: 20250704
  Receipt Date: 20250704
  Transmission Date: 20251021
  Serious: No
  Sender: SANOFI AVENTIS
  Company Number: US-SA-SAC20240429001705

PATIENT
  Sex: Female
  Weight: 55.34 kg

DRUGS (4)
  1. DUPIXENT [Suspect]
     Active Substance: DUPILUMAB
     Indication: Dermatitis atopic
     Dosage: 300 MG QOW
     Route: 058
  2. VERZENIO [Suspect]
     Active Substance: ABEMACICLIB
  3. PROLIA [Concomitant]
     Active Substance: DENOSUMAB
  4. LETROZOLE [Concomitant]
     Active Substance: LETROZOLE

REACTIONS (1)
  - Renal disorder [Unknown]
